FAERS Safety Report 15835619 (Version 1)
Quarter: 2019Q1

REPORT INFORMATION
  Report Type: Report from Study
  Country: None (occurrence: OM)
  Receive Date: 20190117
  Receipt Date: 20190117
  Transmission Date: 20190417
  Serious: Yes (Other)
  Sender: FDA-Public Use
  Company Number: OM-ABBVIE-18K-123-2590684-00

PATIENT
  Age: 37 Year
  Sex: Male
  Weight: 162 kg

DRUGS (1)
  1. HUMIRA [Suspect]
     Active Substance: ADALIMUMAB
     Indication: COLITIS ULCERATIVE
     Route: 058
     Dates: start: 20180108, end: 20181212

REACTIONS (3)
  - Large intestinal ulcer [Recovered/Resolved]
  - Gastrointestinal mucosa hyperaemia [Recovered/Resolved]
  - Gastrointestinal wall thickening [Recovered/Resolved]

NARRATIVE: CASE EVENT DATE: 20181202
